FAERS Safety Report 8321968-7 (Version None)
Quarter: 2012Q2

REPORT INFORMATION
  Report Type: 
  Country: None (occurrence: None)
  Receive Date: 20120430
  Receipt Date: 20120419
  Transmission Date: 20120825
  Serious: Yes (Life-Threatening)
  Sender: FDA-Public Use
  Company Number: ES-NOVOPROD-350011

PATIENT
  Age: 46 Year
  Sex: Male

DRUGS (5)
  1. INSULATARD FLEXPEN [Suspect]
     Indication: DIABETES MELLITUS
     Dosage: 24 U, QD
     Route: 065
     Dates: start: 20110822
  2. LORAZEPAM [Concomitant]
     Indication: ANXIETY
     Dosage: 1 MG, QD
     Route: 048
     Dates: start: 20110908, end: 20120112
  3. FLECAINIDE ACETATE [Concomitant]
     Indication: SUPRAVENTRICULAR TACHYCARDIA
  4. BISPROLOL COMP [Concomitant]
     Indication: SUPRAVENTRICULAR TACHYCARDIA
     Dosage: 5 MG, QD
     Route: 048
     Dates: start: 20110121, end: 20120112
  5. FLECAINIDE ACETATE [Concomitant]
     Indication: INTENTIONAL OVERDOSE
     Dosage: 2 G, QD
     Route: 048
     Dates: start: 20120112, end: 20120112

REACTIONS (3)
  - INTENTIONAL OVERDOSE [None]
  - VENTRICULAR TACHYCARDIA [None]
  - CONDUCTION DISORDER [None]
